FAERS Safety Report 4306739-0 (Version None)
Quarter: 2004Q1

REPORT INFORMATION
  Report Type: 
  Country: None (occurrence: None)
  Receive Date: 20040225
  Receipt Date: 20031212
  Transmission Date: 20041129
  Serious: No
  Sender: FDA-Public Use
  Company Number: US-BRISTOL-MYERS SQUIBB COMPANY-12471785

PATIENT
  Age: 61 Year
  Sex: Female
  Weight: 54 kg

DRUGS (12)
  1. EXCEDRIN (MIGRAINE) [Suspect]
     Indication: MIGRAINE
     Dosage: DURATION = 4-5 YEARS
     Route: 048
  2. LIPITOR [Concomitant]
  3. CELEXA [Concomitant]
  4. REGLAN [Concomitant]
  5. REQUIP [Concomitant]
  6. ACIPHEX [Concomitant]
  7. VITAMIN C [Concomitant]
  8. VITAMIN B6 [Concomitant]
  9. VITAMIN E [Concomitant]
  10. CALCIUM [Concomitant]
  11. GLUCOSAMINE [Concomitant]
  12. FISH OIL [Concomitant]

REACTIONS (1)
  - DRUG INEFFECTIVE [None]
